FAERS Safety Report 23254652 (Version 1)
Quarter: 2023Q4

REPORT INFORMATION
  Report Type: Spontaneous
  Country: FR (occurrence: FR)
  Receive Date: 20231203
  Receipt Date: 20231203
  Transmission Date: 20240109
  Serious: Yes (Hospitalization, Other)
  Sender: FDA-Public Use
  Company Number: FR-ROCHE-3433837

PATIENT
  Age: 79 Year
  Sex: Male
  Weight: 65 kg

DRUGS (13)
  1. CAPECITABINE [Suspect]
     Active Substance: CAPECITABINE
     Indication: Colorectal cancer metastatic
     Dosage: ON 13/SEP/2023, HE ADMINISTERED LAST DOSE BEFORE SAE (3300 MG)
     Route: 048
     Dates: start: 20220621
  2. CAPECITABINE [Suspect]
     Active Substance: CAPECITABINE
     Dosage: 3300 MILLIGRAM
     Route: 065
     Dates: start: 20230913
  3. OXALIPLATIN [Suspect]
     Active Substance: OXALIPLATIN
     Indication: Colorectal cancer metastatic
     Dosage: ON 26/SEP/2023, HE ADMINISTERED LAST DOSE (174 MG) BEFORE SAE CYCLE 23
     Route: 065
     Dates: start: 20220621
  4. OXALIPLATIN [Suspect]
     Active Substance: OXALIPLATIN
     Dosage: 174 MILLIGRAM
     Route: 065
     Dates: start: 20230926
  5. ATEZOLIZUMAB [Suspect]
     Active Substance: ATEZOLIZUMAB
     Indication: Colorectal cancer metastatic
     Dosage: ON 26/SEP/2023, HE ADMINISTERED LAST DOSE (1200 MG) BEFORE SAE CYCLE 23
     Route: 065
     Dates: start: 20220621
  6. BEVACIZUMAB [Suspect]
     Active Substance: BEVACIZUMAB
     Indication: Colorectal cancer metastatic
     Dosage: ON 26/SEP/2023, HE ADMINISTERED LAST DOSE (520 MG) BEFORE SAE CYCLE 23
     Route: 065
     Dates: start: 20220802
  7. BEVACIZUMAB [Suspect]
     Active Substance: BEVACIZUMAB
     Dosage: 520 MILLIGRAM
     Route: 065
     Dates: start: 20230926
  8. Aquasoft [Concomitant]
     Indication: Product used for unknown indication
     Dosage: UNK
     Route: 065
  9. GAVISCON [Concomitant]
     Active Substance: ALUMINUM HYDROXIDE\MAGNESIUM CARBONATE
     Indication: Product used for unknown indication
     Dosage: UNK
     Route: 065
  10. CARAFATE [Concomitant]
     Active Substance: SUCRALFATE
     Indication: Product used for unknown indication
     Dosage: UNK
     Route: 065
  11. LIPTRUZET [Concomitant]
     Active Substance: ATORVASTATIN CALCIUM\EZETIMIBE
     Indication: Product used for unknown indication
     Dosage: 40 MILLIGRAM
     Route: 065
  12. CETALKONIUM CHLORIDE\CHOLINE SALICYLATE [Concomitant]
     Active Substance: CETALKONIUM CHLORIDE\CHOLINE SALICYLATE
     Indication: Product used for unknown indication
     Dosage: UNK
     Route: 065
  13. ENALAPRIL MALEATE\LERCANIDIPINE HYDROCHLORIDE [Concomitant]
     Active Substance: ENALAPRIL MALEATE\LERCANIDIPINE HYDROCHLORIDE
     Indication: Product used for unknown indication
     Dosage: 20 MILLIGRAM
     Route: 065

REACTIONS (1)
  - Retinal detachment [Not Recovered/Not Resolved]

NARRATIVE: CASE EVENT DATE: 20231012
